APPROVED DRUG PRODUCT: HYDROMORPHONE HYDROCHLORIDE
Active Ingredient: HYDROMORPHONE HYDROCHLORIDE
Strength: 16MG
Dosage Form/Route: TABLET, EXTENDED RELEASE;ORAL
Application: A205629 | Product #003 | TE Code: AB
Applicant: OSMOTICA PHARMACEUTICAL US LLC
Approved: Jul 7, 2016 | RLD: No | RS: No | Type: RX